FAERS Safety Report 9716058 (Version 1)
Quarter: 2013Q4

REPORT INFORMATION
  Report Type: Spontaneous
  Country: GB (occurrence: GB)
  Receive Date: 20131127
  Receipt Date: 20131127
  Transmission Date: 20140711
  Serious: Yes (Death, Other)
  Sender: FDA-Public Use
  Company Number: GB-ABBVIE-13P-167-1173729-00

PATIENT
  Age: 35 Year
  Sex: Male

DRUGS (12)
  1. EPILIM [Suspect]
     Indication: PRODUCT USED FOR UNKNOWN INDICATION
     Route: 048
     Dates: start: 2007
  2. PAROXETINE HYDROCHLORIDE [Suspect]
     Indication: DEPRESSED MOOD
     Route: 048
  3. ZOPICLONE [Suspect]
     Indication: INSOMNIA
     Dosage: AT BEDTIME
     Route: 048
     Dates: start: 2007
  4. ZAPONEX [Suspect]
     Indication: SCHIZOPHRENIA
     Dates: start: 20041112, end: 200702
  5. ZAPONEX [Suspect]
     Dosage: AT BEDTIME
     Route: 048
     Dates: start: 20070219, end: 20130507
  6. UNSPECIFIED INGREDIENT [Suspect]
     Indication: SALIVARY HYPERSECRETION
     Route: 048
  7. DIAZEPAM [Suspect]
     Indication: ANXIETY
     Dosage: AT BEDTIME
     Route: 048
     Dates: start: 2007
  8. ETHANOL [Suspect]
     Indication: PRODUCT USED FOR UNKNOWN INDICATION
     Route: 048
  9. LANSOPRAZOLE [Concomitant]
     Indication: PRODUCT USED FOR UNKNOWN INDICATION
  10. DOCUSATE SODIUM\SENNOSIDES [Concomitant]
     Indication: PRODUCT USED FOR UNKNOWN INDICATION
  11. PROCYCLIDINE [Concomitant]
     Indication: PRODUCT USED FOR UNKNOWN INDICATION
     Dates: start: 2007
  12. CO-CODAMOL [Concomitant]
     Indication: PRODUCT USED FOR UNKNOWN INDICATION
     Dates: start: 201304

REACTIONS (6)
  - Toxicity to various agents [Fatal]
  - Pulmonary oedema [Not Recovered/Not Resolved]
  - Gastritis erosive [Not Recovered/Not Resolved]
  - Arteriosclerosis [Not Recovered/Not Resolved]
  - Lower respiratory tract infection [Not Recovered/Not Resolved]
  - Drug interaction [Not Recovered/Not Resolved]
